FAERS Safety Report 5142713-2 (Version None)
Quarter: 2006Q4

REPORT INFORMATION
  Report Type: 
  Country: None (occurrence: None)
  Receive Date: 20061027
  Receipt Date: 20060731
  Transmission Date: 20070319
  Serious: Yes (Other)
  Sender: FDA-Public Use
  Company Number: 2006BH012334

PATIENT
  Age: 49 Year
  Sex: Male

DRUGS (3)
  1. AMPICILLIN AND SULBACTAM [Suspect]
     Indication: DIABETIC FOOT INFECTION
     Dosage: 3 GM; EVERY 8 HR; IV
     Route: 042
  2. GLIMEPIRIDE [Concomitant]
  3. DIMETHYLBIGUANIDE [Concomitant]

REACTIONS (6)
  - ANOREXIA [None]
  - CHOLESTASIS [None]
  - HEPATIC CIRRHOSIS [None]
  - LEUKOCYTOSIS [None]
  - MALAISE [None]
  - SPLENOMEGALY [None]
